FAERS Safety Report 8131412-0 (Version None)
Quarter: 2012Q1

REPORT INFORMATION
  Report Type: 
  Country: None (occurrence: None)
  Receive Date: 20120213
  Receipt Date: 20120203
  Transmission Date: 20120608
  Serious: Yes (Hospitalization, Disabling, Other)
  Sender: FDA-Public Use
  Company Number: US-BAYER-2011-045219

PATIENT
  Age: 35 Year
  Sex: Female
  Weight: 100 kg

DRUGS (3)
  1. YAZ [Suspect]
     Indication: PREMENSTRUAL SYNDROME
  2. YAZ [Suspect]
     Indication: ACNE
     Dosage: UNK
     Dates: start: 20070501, end: 20090201
  3. YAZ [Suspect]

REACTIONS (5)
  - ABDOMINAL PAIN [None]
  - ANXIETY [None]
  - ANHEDONIA [None]
  - CYSTITIS INTERSTITIAL [None]
  - PAIN [None]
